FAERS Safety Report 9315760 (Version 1)
Quarter: 2013Q2

REPORT INFORMATION
  Report Type: Spontaneous
  Country: CA (occurrence: CA)
  Receive Date: 20130529
  Receipt Date: 20130529
  Transmission Date: 20140414
  Serious: Yes (Hospitalization, Other)
  Sender: FDA-Public Use
  Company Number: CA-RB-007210-08

PATIENT
  Age: 35 Year
  Sex: Female

DRUGS (2)
  1. SUBOXONE [Suspect]
     Indication: DRUG DEPENDENCE
     Route: 060
     Dates: start: 20081128
  2. SUBUTEX [Suspect]
     Indication: DRUG DEPENDENCE
     Route: 060

REACTIONS (3)
  - Exposure during pregnancy [Recovered/Resolved]
  - Road traffic accident [Recovered/Resolved]
  - Premature separation of placenta [Recovered/Resolved]
